FAERS Safety Report 7429446-4 (Version None)
Quarter: 2011Q2

REPORT INFORMATION
  Report Type: 
  Country: None (occurrence: None)
  Receive Date: 20110419
  Receipt Date: 20110419
  Transmission Date: 20111010
  Serious: No
  Sender: FDA-Public Use
  Company Number: None

PATIENT
  Sex: Female

DRUGS (1)
  1. XOLAIR [Suspect]
     Dosage: 150 G Q MONTH SQ MID-JAN 2011
     Route: 058
     Dates: start: 20110101, end: 20110301

REACTIONS (2)
  - DYSPNOEA [None]
  - URTICARIA [None]
